FAERS Safety Report 8183403-1 (Version None)
Quarter: 2012Q1

REPORT INFORMATION
  Report Type: 
  Country: None (occurrence: None)
  Receive Date: 20120305
  Receipt Date: 20120229
  Transmission Date: 20120608
  Serious: No
  Sender: FDA-Public Use
  Company Number: US-TEVA-325496USA

PATIENT
  Sex: Female
  Weight: 56.75 kg

DRUGS (3)
  1. SPRINTEC [Concomitant]
     Indication: CONTRACEPTION
  2. AUGMENTIN '125' [Concomitant]
     Indication: PNEUMONIA
  3. PLAN B ONE-STEP [Suspect]
     Indication: POST COITAL CONTRACEPTION
     Dosage: 1.5 MILLIGRAM;
     Route: 048
     Dates: start: 20120217, end: 20120217

REACTIONS (3)
  - BACK PAIN [None]
  - ABDOMINAL PAIN LOWER [None]
  - MENSTRUATION IRREGULAR [None]
